FAERS Safety Report 18170770 (Version 1)
Quarter: 2020Q3

REPORT INFORMATION
  Report Type: Spontaneous
  Country: CH (occurrence: CH)
  Receive Date: 20200819
  Receipt Date: 20200819
  Transmission Date: 20201103
  Serious: Yes (Other)
  Sender: FDA-Public Use
  Company Number: CH-JNJFOC-20200820194

PATIENT
  Age: 57 Year
  Sex: Female

DRUGS (4)
  1. VITAMIN A                          /00056001/ [Concomitant]
     Active Substance: RETINOL
     Route: 047
  2. SIMPONI [Suspect]
     Active Substance: GOLIMUMAB
     Indication: OLIGOARTHRITIS
     Route: 058
     Dates: start: 2012
  3. VITAMIN D3 [Concomitant]
     Active Substance: CHOLECALCIFEROL
  4. IBEROGAST [Concomitant]
     Active Substance: HERBALS

REACTIONS (1)
  - Postmenopausal haemorrhage [Unknown]

NARRATIVE: CASE EVENT DATE: 2020
